FAERS Safety Report 11388385 (Version 2)
Quarter: 2019Q2

REPORT INFORMATION
  Report Type: Spontaneous
  Country: US (occurrence: US)
  Receive Date: 20150817
  Receipt Date: 20190506
  Transmission Date: 20190711
  Serious: Yes (Death, Hospitalization, Other)
  Sender: FDA-Public Use
  Company Number: US-009507513-1508USA006129

PATIENT
  Sex: Female
  Weight: 92.97 kg

DRUGS (3)
  1. JANUVIA [Suspect]
     Active Substance: SITAGLIPTIN PHOSPHATE
     Indication: TYPE 2 DIABETES MELLITUS
     Dosage: UNK
     Route: 048
     Dates: start: 20070806, end: 20190219
  2. GEMZAR [Suspect]
     Active Substance: GEMCITABINE HYDROCHLORIDE
     Dosage: UNK
     Dates: start: 20130524, end: 20130611
  3. JANUVIA [Suspect]
     Active Substance: SITAGLIPTIN PHOSPHATE
     Dosage: 100 MILLIGRAM, QD
     Route: 048

REACTIONS (20)
  - Leukopenia [Unknown]
  - Cardiac murmur [Unknown]
  - Blood glucose increased [Unknown]
  - Arthritis [Unknown]
  - Osteoarthritis [Unknown]
  - Cholelithiasis [Unknown]
  - Hyperlipidaemia [Unknown]
  - Pancreatic carcinoma metastatic [Fatal]
  - Contusion [Unknown]
  - Duodenal ulcer [Unknown]
  - Gastrointestinal mucosal necrosis [Unknown]
  - Muscular weakness [Unknown]
  - Blood loss anaemia [Recovering/Resolving]
  - Skin laceration [Unknown]
  - Oedema peripheral [Recovering/Resolving]
  - Dizziness [Unknown]
  - Gastritis erosive [Unknown]
  - Hypertension [Unknown]
  - Anaemia [Recovering/Resolving]
  - Varices oesophageal [Unknown]

NARRATIVE: CASE EVENT DATE: 201305
